FAERS Safety Report 12272108 (Version 1)
Quarter: 2016Q2

REPORT INFORMATION
  Report Type: Spontaneous
  Country: US (occurrence: US)
  Receive Date: 20160415
  Receipt Date: 20160415
  Transmission Date: 20160815
  Serious: No
  Sender: FDA-Public Use
  Company Number: US-FERRINGPH-2016FE00434

PATIENT
  Age: 65 Year
  Sex: Male

DRUGS (1)
  1. FIRMAGON [Suspect]
     Active Substance: DEGARELIX ACETATE
     Indication: PROSTATE CANCER
     Dosage: EVERY 28 DAYS
     Route: 058
     Dates: start: 20151124

REACTIONS (1)
  - Blood testosterone abnormal [Unknown]

NARRATIVE: CASE EVENT DATE: 20160105
